FAERS Safety Report 8579378-3 (Version None)
Quarter: 2012Q3

REPORT INFORMATION
  Report Type: 
  Country: None (occurrence: None)
  Receive Date: 20120808
  Receipt Date: 20120807
  Transmission Date: 20120928
  Serious: Yes (Other)
  Sender: FDA-Public Use
  Company Number: LV-ROCHE-1098829

PATIENT
  Age: 68 Year
  Sex: Female

DRUGS (4)
  1. CALCIGRAN FORTE [Concomitant]
     Indication: OSTEOPOROSIS
     Dosage: 1X2
     Route: 048
     Dates: start: 20120615
  2. BONIVA [Suspect]
     Indication: OSTEOPOROSIS
     Route: 048
     Dates: start: 20120615, end: 20120615
  3. VIGANTOL [Concomitant]
     Indication: OSTEOPOROSIS
     Dosage: 2 DROPS X 2
     Route: 048
     Dates: start: 20120615
  4. MYDOCALM [Concomitant]
     Route: 048
     Dates: start: 20120501

REACTIONS (1)
  - VISUAL ACUITY REDUCED [None]
